FAERS Safety Report 4777673-7 (Version None)
Quarter: 2005Q3

REPORT INFORMATION
  Report Type: 
  Country: None (occurrence: None)
  Receive Date: 20050923
  Receipt Date: 20050316
  Transmission Date: 20060218
  Serious: Yes (Death, Hospitalization)
  Sender: FDA-Public Use
  Company Number: US-MERCK-0503USA03428

PATIENT
  Age: 62 Year
  Sex: Female
  Weight: 70 kg

DRUGS (9)
  1. VIOXX [Suspect]
     Indication: PAIN
     Route: 048
     Dates: start: 20010420
  2. GLIPIZIDE [Concomitant]
     Route: 048
  3. HYDROCODONE BITARTRATE [Concomitant]
     Route: 048
  4. SOMA [Concomitant]
     Route: 048
  5. DARVON [Concomitant]
     Route: 065
  6. ESTRADIOL [Concomitant]
     Route: 048
  7. ZOCOR [Concomitant]
     Route: 048
  8. CELEBREX [Concomitant]
     Route: 048
     Dates: end: 20010420
  9. CELEXA [Concomitant]
     Route: 048

REACTIONS (25)
  - BACK PAIN [None]
  - BLOOD GLUCOSE INCREASED [None]
  - BRAIN DEATH [None]
  - CARDIO-RESPIRATORY ARREST [None]
  - CAROTID ARTERY STENOSIS [None]
  - CEREBRAL HAEMORRHAGE [None]
  - CEREBROVASCULAR ACCIDENT [None]
  - COMA [None]
  - GENERAL PHYSICAL HEALTH DETERIORATION [None]
  - HAEMATOCRIT INCREASED [None]
  - HAEMOGLOBIN INCREASED [None]
  - HYPERGLYCAEMIA [None]
  - HYPOAESTHESIA [None]
  - ISCHAEMIC STROKE [None]
  - JOINT SWELLING [None]
  - LETHARGY [None]
  - MIGRAINE [None]
  - PAIN [None]
  - PLATELET COUNT INCREASED [None]
  - RESPIRATORY FAILURE [None]
  - SINUS TACHYCARDIA [None]
  - SPINAL OSTEOARTHRITIS [None]
  - STAPHYLOCOCCAL INFECTION [None]
  - TRICUSPID VALVE INCOMPETENCE [None]
  - WHITE BLOOD CELL COUNT INCREASED [None]
